FAERS Safety Report 5337854-0 (Version None)
Quarter: 2007Q2

REPORT INFORMATION
  Report Type: 
  Country: None (occurrence: None)
  Receive Date: 20070314
  Receipt Date: 20061213
  Transmission Date: 20071010
  Serious: Yes (Other)
  Sender: FDA-Public Use
  Company Number: 2006PV000038

PATIENT
  Age: 71 Year
  Sex: Female

DRUGS (1)
  1. DEPODUR [Suspect]
     Dosage: 10 MG;

REACTIONS (2)
  - HYPOTENSION [None]
  - RESPIRATORY DEPRESSION [None]
